FAERS Safety Report 20141396 (Version 1)
Quarter: 2021Q4

REPORT INFORMATION
  Report Type: Other
  Country: CA (occurrence: CA)
  Receive Date: 20211202
  Receipt Date: 20211202
  Transmission Date: 20220303
  Serious: Yes (Other)
  Sender: FDA-Public Use
  Company Number: CA-APOTEX-2021AP045944

PATIENT
  Age: 51 Year
  Sex: Male

DRUGS (3)
  1. PREDNISONE [Suspect]
     Active Substance: PREDNISONE
     Indication: Product used for unknown indication
     Dosage: 20 MILLIGRAM, QD
     Route: 065
  2. PREDNISONE [Suspect]
     Active Substance: PREDNISONE
     Dosage: 50 MILLIGRAM, QD
     Route: 065
  3. MYCOPHENOLATE SODIUM [Suspect]
     Active Substance: MYCOPHENOLATE SODIUM
     Indication: Product used for unknown indication
     Dosage: 720 MILLIGRAM, BID
     Route: 065

REACTIONS (16)
  - Deep vein thrombosis [Unknown]
  - Arthritis [Unknown]
  - Condition aggravated [Unknown]
  - Weight decreased [Unknown]
  - Lupus nephritis [Unknown]
  - Mucosal ulceration [Unknown]
  - Osteopenia [Unknown]
  - Pleurisy [Unknown]
  - Protein-losing gastroenteropathy [Unknown]
  - Proteinuria [Unknown]
  - Raynaud^s phenomenon [Unknown]
  - Splinter haemorrhages [Unknown]
  - Steroid dependence [Unknown]
  - Tendon rupture [Unknown]
  - Vasculitis [Unknown]
  - Anaemia [Unknown]
